FAERS Safety Report 6562447-7 (Version None)
Quarter: 2010Q1

REPORT INFORMATION
  Report Type: 
  Country: None (occurrence: None)
  Receive Date: 20100130
  Receipt Date: 20091110
  Transmission Date: 20100710
  Serious: No
  Sender: FDA-Public Use
  Company Number: US-ABBOTT-09P-163-0608586-00

PATIENT
  Sex: Female
  Weight: 49.032 kg

DRUGS (3)
  1. HUMIRA [Suspect]
     Indication: RHEUMATOID ARTHRITIS
     Route: 058
  2. OXYCODONE [Concomitant]
     Indication: PAIN
     Dosage: TAKES 1/2 A PILL DAILY.
     Route: 048
  3. NABUMETONE [Concomitant]
     Indication: INFLAMMATION
     Dosage: CURRENTLY NOT TAKING

REACTIONS (6)
  - ARTHRITIS [None]
  - ARTHROPATHY [None]
  - ASTHENIA [None]
  - FEELING ABNORMAL [None]
  - MOBILITY DECREASED [None]
  - TRIGGER FINGER [None]
